FAERS Safety Report 4874993-2 (Version None)
Quarter: 2006Q1

REPORT INFORMATION
  Report Type: 
  Country: None (occurrence: None)
  Receive Date: 20060109
  Receipt Date: 20060105
  Transmission Date: 20060701
  Serious: Yes (Death, Hospitalization)
  Sender: FDA-Public Use
  Company Number: DE-BRISTOL-MYERS SQUIBB COMPANY-13237847

PATIENT
  Age: 71 Year
  Sex: Female

DRUGS (6)
  1. CISPLATIN [Suspect]
     Indication: GASTRIC CANCER
     Route: 041
     Dates: start: 20051220, end: 20051220
  2. FLUOROURACIL [Suspect]
     Indication: GASTRIC CANCER
     Route: 041
     Dates: start: 20051220, end: 20051225
  3. EMEND [Concomitant]
     Indication: VOMITING
     Route: 048
     Dates: start: 20051220, end: 20051222
  4. ZOFRAN [Concomitant]
     Indication: VOMITING
     Route: 048
     Dates: start: 20051220, end: 20051225
  5. AMPHO-MORONAL [Concomitant]
     Indication: CANDIDIASIS
     Route: 048
     Dates: start: 20051213
  6. L-THYROXINE [Concomitant]
     Indication: HYPOTHYROIDISM
     Route: 048

REACTIONS (6)
  - ABDOMINAL PAIN [None]
  - FEBRILE NEUTROPENIA [None]
  - LEUKOPENIA [None]
  - SEPSIS [None]
  - THROMBOCYTOPENIA [None]
  - VOMITING [None]
